FAERS Safety Report 18064013 (Version 1)
Quarter: 2020Q3

REPORT INFORMATION
  Report Type: Spontaneous
  Country: CA (occurrence: CA)
  Receive Date: 20200724
  Receipt Date: 20200724
  Transmission Date: 20201103
  Serious: Yes (Hospitalization, Other)
  Sender: FDA-Public Use
  Company Number: CA-AMGEN-CANSP2020118605

PATIENT
  Age: 80 Year
  Sex: Female

DRUGS (2)
  1. ENBREL [Suspect]
     Active Substance: ETANERCEPT
     Indication: PRODUCT USED FOR UNKNOWN INDICATION
     Dosage: UNK
     Route: 065
  2. ORENCIA [Suspect]
     Active Substance: ABATACEPT
     Indication: RHEUMATOID ARTHRITIS
     Dosage: 500 MILLIGRAM, Q4WK
     Route: 042

REACTIONS (13)
  - Hip fracture [Unknown]
  - Dyspnoea [Unknown]
  - Pyrexia [Unknown]
  - Urinary tract infection [Unknown]
  - Vomiting [Unknown]
  - Pain [Unknown]
  - Rheumatoid arthritis [Unknown]
  - Abdominal discomfort [Unknown]
  - Off label use [Unknown]
  - Infection [Unknown]
  - Bladder disorder [Unknown]
  - Nephrolithiasis [Unknown]
  - Pneumonia [Unknown]
